FAERS Safety Report 10045990 (Version 2)
Quarter: 2014Q1

REPORT INFORMATION
  Report Type: Spontaneous
  Country: US (occurrence: US)
  Receive Date: 20140330
  Receipt Date: 20140330
  Transmission Date: 20141002
  Serious: Yes (Other)
  Sender: FDA-Public Use
  Company Number: US-GE HEALTHCARE MEDICAL DIAGNOSTICS-OSCN-PR-0806S-0419

PATIENT
  Sex: Male

DRUGS (16)
  1. GADOLINIUM (UNSPECIFIED) [Suspect]
     Indication: PRODUCT USED FOR UNKNOWN INDICATION
     Route: 042
     Dates: start: 20010225, end: 20010225
  2. GADOLINIUM (UNSPECIFIED) [Suspect]
     Dates: start: 20060420, end: 20060420
  3. OPTIMARK [Suspect]
     Indication: RENAL FAILURE
     Route: 042
     Dates: start: 20060420, end: 20060420
  4. SENSIPAR [Concomitant]
  5. EPOGEN [Concomitant]
  6. WARFARIN [Concomitant]
  7. LANTUS [Concomitant]
  8. HUMALOG [Concomitant]
  9. DIALYVITE [Concomitant]
  10. PHOSLO [Concomitant]
  11. SODIUM BICARBONATE [Concomitant]
  12. SYNTHROID [Concomitant]
  13. MIDODRINE [Concomitant]
  14. FOSRENOL [Concomitant]
  15. OPTIRAY 320 [Concomitant]
  16. VISIPAQUE [Concomitant]

REACTIONS (1)
  - Nephrogenic systemic fibrosis [Not Recovered/Not Resolved]
